FAERS Safety Report 16311721 (Version 1)
Quarter: 2019Q2

REPORT INFORMATION
  Report Type: Report from Study
  Country: FR (occurrence: FR)
  Receive Date: 20190514
  Receipt Date: 20190514
  Transmission Date: 20190711
  Serious: Yes (Hospitalization, Other)
  Sender: FDA-Public Use
  Company Number: FR-JAZZ-2019-FR-001992

PATIENT

DRUGS (2)
  1. CICLOSPORIN A [Suspect]
     Active Substance: CYCLOSPORINE
     Indication: IMMUNOSUPPRESSION
  2. DEFITELIO [Suspect]
     Active Substance: DEFIBROTIDE SODIUM
     Indication: VENOOCCLUSIVE DISEASE
     Dosage: 24 MG/KG/DAY
     Route: 042
     Dates: start: 20181004, end: 20181024

REACTIONS (12)
  - Pleural effusion [Unknown]
  - Insomnia [Unknown]
  - Anaemia [Unknown]
  - Thrombocytopenia [Unknown]
  - Graft versus host disease [Unknown]
  - Hallucination [Unknown]
  - Overdose [Unknown]
  - Aplasia [Recovered/Resolved]
  - Restlessness [Unknown]
  - Hyperaesthesia [Unknown]
  - Hepatorenal syndrome [Unknown]
  - Respiratory failure [Recovered/Resolved]

NARRATIVE: CASE EVENT DATE: 20181016
